FAERS Safety Report 8869214 (Version 1)
Quarter: 2012Q4

REPORT INFORMATION
  Report Type: 
  Country: US (occurrence: US)
  Receive Date: 20121023
  Receipt Date: 20121023
  Transmission Date: 20130627
  Serious: No
  Sender: FDA-Public Use
  Company Number: US-AMGEN-USASP2012053484

PATIENT
  Age: 65 Year
  Sex: Female

DRUGS (10)
  1. ENBREL [Suspect]
     Indication: RHEUMATOID ARTHRITIS
     Dosage: 50 mg, qwk
     Route: 058
     Dates: end: 201207
  2. FISH OIL [Concomitant]
     Dosage: UNK
  3. VIT D3 [Concomitant]
     Dosage: UNK
  4. POTASSIUM [Concomitant]
     Dosage: UNK
  5. OMEPRAZOLE [Concomitant]
     Dosage: UNK
  6. RAMIPRIL [Concomitant]
     Dosage: UNK
  7. SIMVASTATIN [Concomitant]
  8. LEUCOVORIN /00566701/ [Concomitant]
  9. METHOTREXATE [Concomitant]
     Dosage: UNK
  10. HUMIRA [Concomitant]

REACTIONS (1)
  - Therapeutic response decreased [Unknown]
